FAERS Safety Report 6993175-1 (Version None)
Quarter: 2010Q3

REPORT INFORMATION
  Report Type: 
  Country: None (occurrence: None)
  Receive Date: 20100917
  Receipt Date: 20100202
  Transmission Date: 20110219
  Serious: No
  Sender: FDA-Public Use
  Company Number: US-ASTRAZENECA-2010SE04700

PATIENT
  Age: 15315 Day
  Sex: Male
  Weight: 75.7 kg

DRUGS (6)
  1. SEROQUEL [Suspect]
     Indication: BIPOLAR DISORDER
     Route: 048
  2. SEROQUEL [Suspect]
     Dosage: 50 MG QNOON AND 400 MG QHS
     Route: 048
  3. GEODON [Concomitant]
     Dates: end: 20091201
  4. XANAX [Concomitant]
  5. LAMICTAL [Concomitant]
  6. AMBIEN [Concomitant]

REACTIONS (2)
  - BREAST PAIN [None]
  - GYNAECOMASTIA [None]
